FAERS Safety Report 20049408 (Version 1)
Quarter: 2021Q4

REPORT INFORMATION
  Report Type: Spontaneous
  Country: US (occurrence: None)
  Receive Date: 20211109
  Receipt Date: 20211109
  Transmission Date: 20220303
  Serious: No
  Sender: FDA-Public Use
  Company Number: None

PATIENT
  Age: 55 Year

DRUGS (8)
  1. IBRANCE [Suspect]
     Active Substance: PALBOCICLIB
     Indication: Breast cancer female
     Dosage: FREQUENCY : DAILY;?
     Route: 048
     Dates: start: 20200627, end: 20211109
  2. LISINOPRIL [Concomitant]
     Active Substance: LISINOPRIL
  3. ANASTROZOLE [Concomitant]
     Active Substance: ANASTROZOLE
  4. METOPROLOL [Concomitant]
     Active Substance: METOPROLOL
  5. OMEPRAZOLE [Concomitant]
     Active Substance: OMEPRAZOLE
  6. PHENOBARBITAL [Concomitant]
     Active Substance: PHENOBARBITAL
  7. DILANTIN [Concomitant]
     Active Substance: PHENYTOIN
  8. VITAMIN D [Concomitant]
     Active Substance: VITAMIN D NOS

REACTIONS (1)
  - Laboratory test abnormal [None]

NARRATIVE: CASE EVENT DATE: 20211109
